FAERS Safety Report 5150624-1 (Version None)
Quarter: 2006Q4

REPORT INFORMATION
  Report Type: 
  Country: None (occurrence: None)
  Receive Date: 20061110
  Receipt Date: 20061110
  Transmission Date: 20070319
  Serious: No
  Sender: FDA-Public Use
  Company Number: None

PATIENT
  Sex: Male
  Weight: 81.6475 kg

DRUGS (2)
  1. EQUATE BRAND PAIN RELIEVER   500MG    EQUATE -WALMART- [Suspect]
     Indication: MIGRAINE
     Dosage: 2 CAPLETS  2 TIMES DAILY
     Dates: start: 20060901, end: 20061109
  2. EQUATE BRAND PAIN RELIEVER   500MG    EQUATE -WALMART- [Suspect]
     Indication: PAIN MANAGEMENT
     Dosage: 2 CAPLETS  2 TIMES DAILY
     Dates: start: 20060901, end: 20061109

REACTIONS (5)
  - ABDOMINAL PAIN UPPER [None]
  - DIARRHOEA [None]
  - PAIN [None]
  - PHARMACEUTICAL PRODUCT COMPLAINT [None]
  - POOR QUALITY DRUG ADMINISTERED [None]
